FAERS Safety Report 13067765 (Version 2)
Quarter: 2017Q1

REPORT INFORMATION
  Report Type: Report from Study
  Country: GB (occurrence: GB)
  Receive Date: 20161228
  Receipt Date: 20170111
  Transmission Date: 20170428
  Serious: Yes (Hospitalization)
  Sender: FDA-Public Use
  Company Number: PHHO2016GB017884

PATIENT
  Age: 86 Year
  Sex: Female
  Weight: 80.8 kg

DRUGS (12)
  1. BLINDED LCZ696 [Suspect]
     Active Substance: SACUBITRIL
     Dosage: CODE NOT BROKEN
     Route: 048
     Dates: start: 20161128
  2. FOLIC ACID. [Concomitant]
     Active Substance: FOLIC ACID
     Indication: PRODUCT USED FOR UNKNOWN INDICATION
     Dosage: 5 MG, QD
     Route: 065
     Dates: end: 20161125
  3. DOXAZOCIN [Concomitant]
     Active Substance: DOXAZOSIN MESYLATE
     Indication: PRODUCT USED FOR UNKNOWN INDICATION
     Dosage: 2 MG, QD
     Route: 065
  4. BLINDED NO TREATMENT RECEIVED [Suspect]
     Active Substance: INVESTIGATIONAL PRODUCT
     Indication: CARDIAC FAILURE
     Dosage: CODE NOT BROKEN
     Route: 048
     Dates: start: 20150429, end: 20161125
  5. OMEPRAZOLE. [Concomitant]
     Active Substance: OMEPRAZOLE
     Indication: PRODUCT USED FOR UNKNOWN INDICATION
     Dosage: 20 MG, QD
     Route: 065
     Dates: end: 20161125
  6. BLINDED NO TREATMENT RECEIVED [Suspect]
     Active Substance: INVESTIGATIONAL PRODUCT
     Dosage: CODE NOT BROKEN
     Route: 048
     Dates: start: 20161128
  7. BISOPROLOL [Suspect]
     Active Substance: BISOPROLOL
     Indication: PRODUCT USED FOR UNKNOWN INDICATION
     Dosage: 10 MG, QD
     Route: 065
     Dates: end: 20161125
  8. DIOVAN [Suspect]
     Active Substance: VALSARTAN
     Dosage: CODE NOT BROKEN
     Route: 048
     Dates: start: 20161128
  9. DIOVAN [Suspect]
     Active Substance: VALSARTAN
     Indication: CARDIAC FAILURE
     Dosage: CODE NOT BROKEN
     Route: 048
     Dates: start: 20150429, end: 20161125
  10. BLINDED LCZ696 [Suspect]
     Active Substance: SACUBITRIL
     Indication: CARDIAC FAILURE
     Dosage: CODE NOT BROKEN
     Route: 048
     Dates: start: 20150429, end: 20161125
  11. BUMETANIDE. [Concomitant]
     Active Substance: BUMETANIDE
     Indication: PRODUCT USED FOR UNKNOWN INDICATION
     Dosage: 2 MG / 1 MG
     Route: 065
     Dates: end: 20161125
  12. PARACETAMOL [Concomitant]
     Active Substance: ACETAMINOPHEN
     Indication: PRODUCT USED FOR UNKNOWN INDICATION
     Dosage: 1 G, QD
     Route: 065
     Dates: end: 20161125

REACTIONS (1)
  - Sinus node dysfunction [Recovered/Resolved]

NARRATIVE: CASE EVENT DATE: 20161126
